FAERS Safety Report 24423647 (Version 3)
Quarter: 2025Q1

REPORT INFORMATION
  Report Type: Spontaneous
  Country: EU (occurrence: EU)
  Receive Date: 20241010
  Receipt Date: 20250127
  Transmission Date: 20250409
  Serious: Yes (Life-Threatening)
  Sender: ETHYPHARM
  Company Number: None

PATIENT

DRUGS (9)
  1. BUPRENORPHINE HYDROCHLORIDE [Suspect]
     Active Substance: BUPRENORPHINE HYDROCHLORIDE
     Indication: Drug abuse
     Dates: start: 20231126
  2. OXYBATE [Suspect]
     Active Substance: OXYBATE
     Dates: start: 20231126
  3. ZOPICLONE [Suspect]
     Active Substance: ZOPICLONE
     Indication: Drug abuse
     Dates: start: 20231126
  4. BROMAZEPAM [Suspect]
     Active Substance: BROMAZEPAM
     Indication: Drug abuse
     Dates: start: 20231126
  5. MIDOMAFETAMINE [Suspect]
     Active Substance: MIDOMAFETAMINE
     Dates: start: 20231126
  6. CANNABIS SATIVA SUBSP. INDICA TOP [Suspect]
     Active Substance: CANNABIS SATIVA SUBSP. INDICA TOP
     Dates: start: 20231126
  7. METHYLPHENIDATE HYDROCHLORIDE [Suspect]
     Active Substance: METHYLPHENIDATE HYDROCHLORIDE
     Indication: Drug abuse
     Dates: start: 20231126
  8. 3-METHYLMETHCATHINONE [Suspect]
     Active Substance: 3-METHYLMETHCATHINONE
     Dates: start: 20231126
  9. DIAZEPAM [Suspect]
     Active Substance: DIAZEPAM
     Indication: Drug abuse
     Dates: start: 20231126

REACTIONS (2)
  - Cardiogenic shock [Recovering/Resolving]
  - Drug abuse [Recovering/Resolving]

NARRATIVE: CASE EVENT DATE: 20231126
